FAERS Safety Report 7457528-X (Version None)
Quarter: 2011Q2

REPORT INFORMATION
  Report Type: 
  Country: None (occurrence: None)
  Receive Date: 20110504
  Receipt Date: 20110425
  Transmission Date: 20111010
  Serious: Yes (Hospitalization)
  Sender: FDA-Public Use
  Company Number: IT-BRISTOL-MYERS SQUIBB COMPANY-15698178

PATIENT
  Age: 51 Year
  Sex: Female

DRUGS (5)
  1. PACLITAXEL [Suspect]
     Indication: BREAST CANCER
     Dosage: DAY 1, 8, 15 EVERY 28 DAYS
  2. FLUOROURACIL [Suspect]
     Indication: BREAST CANCER
     Dosage: 3 CYCLES
  3. BEVACIZUMAB [Suspect]
     Indication: BREAST CANCER
     Dosage: EVERY 14 DAYS,NO: OF COURSE-5
     Route: 042
  4. CYCLOPHOSPHAMIDE [Suspect]
     Indication: BREAST CANCER
     Dosage: 3 COURSES
  5. EPIRUBICIN [Suspect]
     Indication: BREAST CANCER
     Dosage: 3 CYCLES

REACTIONS (1)
  - SKIN FLAP NECROSIS [None]
